FAERS Safety Report 5171611-3 (Version None)
Quarter: 2006Q4

REPORT INFORMATION
  Report Type: 
  Country: None (occurrence: None)
  Receive Date: 20061213
  Receipt Date: 20061206
  Transmission Date: 20070319
  Serious: Yes (Other)
  Sender: FDA-Public Use
  Company Number: US-ROCHE-474287

PATIENT
  Age: 52 Year
  Sex: Female

DRUGS (2)
  1. PEGASYS [Suspect]
     Indication: HEPATITIS C
     Dosage: ROUTE REPORTED AS INJECTION.
     Route: 050
     Dates: start: 20041001, end: 20051015
  2. RIBAVIRIN [Suspect]
     Indication: HEPATITIS C
     Route: 048
     Dates: start: 20041001, end: 20051015

REACTIONS (4)
  - CONDITION AGGRAVATED [None]
  - HAEMANGIOMA OF LIVER [None]
  - HEPATITIS C [None]
  - HEPATITIS CHRONIC PERSISTENT [None]
